FAERS Safety Report 5478780-6 (Version None)
Quarter: 2007Q4

REPORT INFORMATION
  Report Type: 
  Country: None (occurrence: None)
  Receive Date: 20071002
  Receipt Date: 20070914
  Transmission Date: 20080405
  Serious: Yes (Life-Threatening, Other)
  Sender: FDA-Public Use
  Company Number: 07092258

PATIENT
  Age: 72 Year
  Sex: Male

DRUGS (4)
  1. AMIODARONE HYDROCHLORIDE [Suspect]
     Indication: VENTRICULAR TACHYCARDIA
     Dosage: 200MG, QD, ORAL
     Route: 048
     Dates: start: 20061201, end: 20070501
  2. IMDUR [Concomitant]
  3. HYDROCHLOROTHIAZIDE [Concomitant]
  4. POTASSIUM (POTASSIUM CHLORIDE) [Concomitant]

REACTIONS (4)
  - CONJUNCTIVITIS ALLERGIC [None]
  - COUGH [None]
  - HYPERSENSITIVITY [None]
  - LUNG DISORDER [None]
